FAERS Safety Report 9777712 (Version 2)
Quarter: 2014Q1

REPORT INFORMATION
  Report Type: Report from Study
  Country: US (occurrence: US)
  Receive Date: 20131223
  Receipt Date: 20140116
  Transmission Date: 20141002
  Serious: Yes (Death)
  Sender: FDA-Public Use
  Company Number: US-ROCHE-1323374

PATIENT
  Age: 63 Year
  Sex: Female
  Weight: 86 kg

DRUGS (1)
  1. AVASTIN [Suspect]
     Indication: BRAIN NEOPLASM
     Dosage: LAST DOSE PRIOR TO SAE WAS RECEIVED ON 03/OCT/2013
     Route: 042

REACTIONS (1)
  - Glioblastoma [Fatal]
